FAERS Safety Report 5158857-5 (Version None)
Quarter: 2006Q4

REPORT INFORMATION
  Report Type: 
  Country: None (occurrence: None)
  Receive Date: 20061117
  Receipt Date: 20061108
  Transmission Date: 20070319
  Serious: Yes (Hospitalization, Other)
  Sender: FDA-Public Use
  Company Number: 2006137380

PATIENT
  Sex: Female
  Weight: 59.8748 kg

DRUGS (4)
  1. DETROL [Suspect]
     Indication: INCONTINENCE
     Dosage: (3 IN 1 D)
     Dates: start: 20050901, end: 20060401
  2. TOPROL-XL [Concomitant]
  3. XALATAN [Concomitant]
  4. MOBIC [Concomitant]

REACTIONS (7)
  - ARTHRITIS [None]
  - BODY HEIGHT DECREASED [None]
  - FALL [None]
  - HIP FRACTURE [None]
  - JOINT INJURY [None]
  - OSTEOPOROSIS [None]
  - WEIGHT DECREASED [None]
